FAERS Safety Report 20004373 (Version 2)
Quarter: 2021Q4

REPORT INFORMATION
  Report Type: Spontaneous
  Country: US (occurrence: US)
  Receive Date: 20211028
  Receipt Date: 20211124
  Transmission Date: 20220303
  Serious: Yes (Other)
  Sender: FDA-Public Use
  Company Number: US-BAUSCH-BL-2021-035048

PATIENT
  Age: 74 Year
  Sex: Female

DRUGS (2)
  1. GLYCERIN\PROPYLENE GLYCOL [Suspect]
     Active Substance: GLYCERIN\PROPYLENE GLYCOL
     Indication: Dry eye
     Route: 047
     Dates: start: 2007
  2. GLYCERIN\PROPYLENE GLYCOL [Suspect]
     Active Substance: GLYCERIN\PROPYLENE GLYCOL
     Dosage: 6-8 DROPS IN HER EYE ON 14/OCT/2021
     Route: 047
     Dates: start: 20211014

REACTIONS (6)
  - Eye haemorrhage [Not Recovered/Not Resolved]
  - Instillation site discomfort [Unknown]
  - Anxiety [Recovering/Resolving]
  - Product container issue [Unknown]
  - Product quality issue [Unknown]
  - Incorrect dose administered [Unknown]

NARRATIVE: CASE EVENT DATE: 20210101
